FAERS Safety Report 5500150-2 (Version None)
Quarter: 2007Q4

REPORT INFORMATION
  Report Type: 
  Country: None (occurrence: None)
  Receive Date: 20071025
  Receipt Date: 20071011
  Transmission Date: 20080405
  Serious: Yes (Other)
  Sender: FDA-Public Use
  Company Number: 2007JP004740

PATIENT
  Age: 12 Year
  Sex: Male

DRUGS (4)
  1. TACROLIMUS [Suspect]
     Indication: RENAL TRANSPLANT
  2. MYCOPHENOLIC ACID [Suspect]
     Indication: RENAL TRANSPLANT
  3. METHYLPREDNISOLONE [Suspect]
     Indication: RENAL TRANSPLANT
  4. CYCLOSPORINE [Concomitant]

REACTIONS (5)
  - CHRONIC ALLOGRAFT NEPHROPATHY [None]
  - COMPLICATIONS OF TRANSPLANTED KIDNEY [None]
  - KIDNEY TRANSPLANT REJECTION [None]
  - PERITONEAL DIALYSIS [None]
  - TRANSITIONAL CELL CARCINOMA [None]
